FAERS Safety Report 6440179-3 (Version None)
Quarter: 2009Q4

REPORT INFORMATION
  Report Type: 
  Country: None (occurrence: None)
  Receive Date: 20091113
  Receipt Date: 20090629
  Transmission Date: 20100525
  Serious: No
  Sender: FDA-Public Use
  Company Number: A0795535A

PATIENT
  Age: 74 Year
  Sex: Male

DRUGS (7)
  1. CARVEDILOL [Suspect]
     Indication: DRUG USE FOR UNKNOWN INDICATION
     Route: 048
  2. LIPITOR [Suspect]
     Indication: BLOOD CHOLESTEROL INCREASED
     Dosage: 80MGD PER DAY
     Route: 048
     Dates: start: 20050101
  3. ASPIRIN [Concomitant]
  4. WARFARIN SODIUM [Concomitant]
  5. ZETIA [Concomitant]
  6. TRICOR [Concomitant]
  7. ATACAND [Concomitant]

REACTIONS (2)
  - ABDOMINAL PAIN UPPER [None]
  - NASOPHARYNGITIS [None]
